FAERS Safety Report 21873714 (Version 1)
Quarter: 2023Q1

REPORT INFORMATION
  Report Type: Report from Study
  Country: IT (occurrence: IT)
  Receive Date: 20230117
  Receipt Date: 20230117
  Transmission Date: 20230418
  Serious: Yes (Other)
  Sender: FDA-Public Use
  Company Number: None

PATIENT
  Age: 81 Year
  Sex: Female

DRUGS (9)
  1. RAMIPRIL [Suspect]
     Active Substance: RAMIPRIL
     Indication: Product used for unknown indication
     Dosage: 20UNIT OF MEASUREMENT: MILLIGRAMS
     Route: 048
  2. FUROSEMIDE [Suspect]
     Active Substance: FUROSEMIDE
     Indication: Product used for unknown indication
     Dosage: 25UNIT OF MEASUREMENT: MILLIGRAMS
     Route: 065
  3. CANRENOATE POTASSIUM [Suspect]
     Active Substance: CANRENOATE POTASSIUM
     Dosage: 25 MILLIGRAM, Q6H
     Route: 048
  4. PANTOPRAZOLE SODIUM [Concomitant]
     Active Substance: PANTOPRAZOLE SODIUM
     Dosage: 20UNIT OF MEASUREMENT: MILLIGRAMS AMMI VIA SOMMINISTRAZIONE: ORALE
     Route: 048
  5. ATORVASTATIN [Concomitant]
     Active Substance: ATORVASTATIN
     Dosage: 40UNIT OF MEASUREMENT: MILLIGRAMS ROUTE OF ADMINISTRATION: ORAL
     Route: 048
  6. ALLOPURINOL [Concomitant]
     Active Substance: ALLOPURINOL
     Dosage: 300UNIT OF MEASUREMENT: MILLIGRAMS ROUTE OF ADMINISTRATION: ORAL
     Route: 048
  7. METFORMIN HYDROCHLORIDE [Concomitant]
     Active Substance: METFORMIN HYDROCHLORIDE
     Indication: Type 2 diabetes mellitus
     Dosage: 1000UNIT OF MEASUREMENT: MILLIGRAMS ROUTE OF ADMINISTRATION: ORAL
     Route: 048
  8. CARVEDILOL [Concomitant]
     Active Substance: CARVEDILOL
     Dosage: DOSAGE: 6.25UNIT OF MEASUREMENT: MILLIGRAMS ROUTE OF ADMINISTRATION: ORAL
     Route: 048
  9. ASPIRIN [Concomitant]
     Active Substance: ASPIRIN
     Dosage: ROUTE OF ADMINISTRATION: ORAL
     Route: 048

REACTIONS (2)
  - Diabetic metabolic decompensation [Recovered/Resolved]
  - Hyperkalaemia [Recovered/Resolved]

NARRATIVE: CASE EVENT DATE: 20220622
